FAERS Safety Report 21005679 (Version 2)
Quarter: 2022Q3

REPORT INFORMATION
  Report Type: Spontaneous
  Country: JP (occurrence: JP)
  Receive Date: 20220624
  Receipt Date: 20220705
  Transmission Date: 20221027
  Serious: Yes (Hospitalization, Other)
  Sender: FDA-Public Use
  Company Number: JP-JNJFOC-20220638542

PATIENT
  Age: 66 Year
  Sex: Female

DRUGS (11)
  1. OPSUMIT [Suspect]
     Active Substance: MACITENTAN
     Indication: Pulmonary arterial hypertension
     Route: 048
     Dates: end: 2021
  2. OPSUMIT [Suspect]
     Active Substance: MACITENTAN
     Indication: Pulmonary arterial hypertension
     Dosage: DOSE UNKNOWN,INCREASED
     Route: 048
     Dates: start: 202112, end: 2022
  3. OPSUMIT [Suspect]
     Active Substance: MACITENTAN
     Dosage: DOSE UNKNOWN,INCREASED
     Route: 048
     Dates: start: 2022
  4. UPTRAVI [Suspect]
     Active Substance: SELEXIPAG
     Indication: Pulmonary arterial hypertension
     Route: 048
     Dates: end: 2021
  5. UPTRAVI [Suspect]
     Active Substance: SELEXIPAG
     Dosage: DOSE UNKNOWN,INCREASED
     Route: 048
     Dates: start: 202112, end: 2022
  6. UPTRAVI [Suspect]
     Active Substance: SELEXIPAG
     Dosage: DOSE UNKNOWN,INCREASED
     Route: 048
     Dates: start: 2022
  7. RIOCIGUAT [Concomitant]
     Active Substance: RIOCIGUAT
     Indication: Pulmonary arterial hypertension
     Route: 048
     Dates: end: 2021
  8. RIOCIGUAT [Concomitant]
     Active Substance: RIOCIGUAT
     Route: 048
     Dates: start: 202112, end: 2022
  9. RIOCIGUAT [Concomitant]
     Active Substance: RIOCIGUAT
     Route: 048
     Dates: start: 2022, end: 2022
  10. RIOCIGUAT [Concomitant]
     Active Substance: RIOCIGUAT
     Route: 048
     Dates: start: 2022
  11. ADCIRCA [Concomitant]
     Active Substance: TADALAFIL
     Route: 048

REACTIONS (6)
  - Pericardial effusion [Recovered/Resolved]
  - Right ventricular failure [Recovered/Resolved]
  - Pulmonary oedema [Recovered/Resolved]
  - Pleural effusion [Recovered/Resolved]
  - Oedema peripheral [Recovered/Resolved]
  - Anaemia [Recovered/Resolved]

NARRATIVE: CASE EVENT DATE: 20220120
